FAERS Safety Report 6024299-3 (Version None)
Quarter: 2008Q4

REPORT INFORMATION
  Report Type: 
  Country: None (occurrence: None)
  Receive Date: 20081229
  Receipt Date: 20081216
  Transmission Date: 20090506
  Serious: Yes (Death, Disabling, Other)
  Sender: FDA-Public Use
  Company Number: 2007SP017601

PATIENT
  Sex: Female
  Weight: 63 kg

DRUGS (28)
  1. TEMODAL [Suspect]
     Indication: GLIOBLASTOMA MULTIFORME
     Dosage: 75 MG/M2; QD; PO, 150 MG/M2; QD;PO, 200 MG/M;QD/PO
     Route: 048
     Dates: start: 20070122, end: 20070123
  2. TEMODAL [Suspect]
     Indication: GLIOBLASTOMA MULTIFORME
     Dosage: 75 MG/M2; QD; PO, 150 MG/M2; QD;PO, 200 MG/M;QD/PO
     Route: 048
     Dates: start: 20070214, end: 20070327
  3. TEMODAL [Suspect]
     Indication: GLIOBLASTOMA MULTIFORME
     Dosage: 75 MG/M2; QD; PO, 150 MG/M2; QD;PO, 200 MG/M;QD/PO
     Route: 048
     Dates: start: 20070425, end: 20070429
  4. TEMODAL [Suspect]
     Indication: GLIOBLASTOMA MULTIFORME
     Dosage: 75 MG/M2; QD; PO, 150 MG/M2; QD;PO, 200 MG/M;QD/PO
     Route: 048
     Dates: start: 20070523, end: 20070527
  5. TEMODAL [Suspect]
     Indication: GLIOBLASTOMA MULTIFORME
     Dosage: 75 MG/M2; QD; PO, 150 MG/M2; QD;PO, 200 MG/M;QD/PO
     Route: 048
     Dates: start: 20070620, end: 20070624
  6. TEMODAL [Suspect]
     Indication: GLIOBLASTOMA MULTIFORME
     Dosage: 75 MG/M2; QD; PO, 150 MG/M2; QD;PO, 200 MG/M;QD/PO
     Route: 048
     Dates: start: 20070718, end: 20070722
  7. TEMODAL [Suspect]
     Indication: GLIOBLASTOMA MULTIFORME
     Dosage: 75 MG/M2; QD; PO, 150 MG/M2; QD;PO, 200 MG/M;QD/PO
     Route: 048
     Dates: start: 20070815, end: 20070819
  8. TEMODAL [Suspect]
     Indication: GLIOBLASTOMA MULTIFORME
     Dosage: 75 MG/M2; QD; PO, 150 MG/M2; QD;PO, 200 MG/M;QD/PO
     Route: 048
     Dates: start: 20070912, end: 20070916
  9. TEMODAL [Suspect]
     Indication: GLIOBLASTOMA MULTIFORME
     Dosage: 75 MG/M2; QD; PO, 150 MG/M2; QD;PO, 200 MG/M;QD/PO
     Route: 048
     Dates: start: 20071012, end: 20071016
  10. TEMODAL [Suspect]
     Indication: GLIOBLASTOMA MULTIFORME
     Dosage: 75 MG/M2; QD; PO, 150 MG/M2; QD;PO, 200 MG/M;QD/PO
     Route: 048
     Dates: start: 20071122, end: 20071126
  11. DEPAKENE [Concomitant]
  12. GASTER D [Concomitant]
  13. LOXOPROFEN [Concomitant]
  14. PURSENNID [Concomitant]
  15. SOLANAX [Concomitant]
  16. MAGNESIUM OXIDE [Concomitant]
  17. AMOBAN [Concomitant]
  18. RINDERON [Concomitant]
  19. MYSLEE [Concomitant]
  20. NAVOBAN [Concomitant]
  21. SEFMAZON [Concomitant]
  22. GLYCEOL [Concomitant]
  23. COTRIM [Concomitant]
  24. PURSENNID [Concomitant]
  25. MAGMITT [Concomitant]
  26. MAGNESIUM OXIDE [Concomitant]
  27. GASTER [Concomitant]
  28. BANAN [Concomitant]

REACTIONS (6)
  - ALTERED STATE OF CONSCIOUSNESS [None]
  - DISEASE PROGRESSION [None]
  - HEMIPARESIS [None]
  - HEPATIC FUNCTION ABNORMAL [None]
  - NEOPLASM PROGRESSION [None]
  - SPEECH DISORDER [None]
